FAERS Safety Report 4775318-3 (Version None)
Quarter: 2005Q3

REPORT INFORMATION
  Report Type: 
  Country: None (occurrence: None)
  Receive Date: 20050915
  Receipt Date: 20050915
  Transmission Date: 20060218
  Serious: Yes (Hospitalization)
  Sender: FDA-Public Use
  Company Number: None

PATIENT
  Age: 56 Year
  Sex: Male
  Weight: 109.7705 kg

DRUGS (13)
  1. FERRIC GLUCONATE [Suspect]
     Indication: IRON DEFICIENCY ANAEMIA
     Dosage: IV 250 MG Q WEEK
     Route: 042
     Dates: start: 20040114
  2. FERRIC GLUCONATE [Suspect]
     Indication: IRON DEFICIENCY ANAEMIA
     Dosage: IV 250 MG Q WEEK
     Route: 042
     Dates: start: 20040312
  3. FOLIC ACID [Concomitant]
  4. PAROXETINE [Concomitant]
  5. BUPROPION [Concomitant]
  6. PANCRELEPASE [Concomitant]
  7. ATENOLOL [Concomitant]
  8. FESO4 [Concomitant]
  9. DOXAZOSIN [Concomitant]
  10. SILDENAFIL [Concomitant]
  11. VIT D /CALCIUM [Concomitant]
  12. ALENDRONATE [Concomitant]
  13. NAPROXEN [Concomitant]

REACTIONS (4)
  - BLOOD PRESSURE SYSTOLIC DECREASED [None]
  - DIZZINESS [None]
  - HYPOTENSION [None]
  - INFUSION RELATED REACTION [None]
